FAERS Safety Report 4749933-7 (Version None)
Quarter: 2005Q3

REPORT INFORMATION
  Report Type: 
  Country: None (occurrence: None)
  Receive Date: 20050822
  Receipt Date: 20050608
  Transmission Date: 20060218
  Serious: Yes (Hospitalization)
  Sender: FDA-Public Use
  Company Number: US-MERCK-0506USA01304

PATIENT
  Age: 81 Year
  Sex: Female

DRUGS (6)
  1. ZOCOR [Suspect]
     Indication: BLOOD CHOLESTEROL INCREASED
     Route: 048
  2. PRINIVIL [Concomitant]
     Route: 048
     Dates: start: 20040525
  3. METOPROLOL [Concomitant]
     Route: 048
     Dates: start: 20040501
  4. ASPIRIN [Concomitant]
     Route: 048
     Dates: start: 20040501
  5. VITAMINS (UNSPECIFIED) [Concomitant]
     Route: 048
     Dates: start: 20040501
  6. TERAZOSIN HYDROCHLORIDE [Concomitant]
     Route: 048

REACTIONS (4)
  - ACUTE MYOCARDIAL INFARCTION [None]
  - DIFFICULTY IN WALKING [None]
  - MUSCLE TIGHTNESS [None]
  - MYALGIA [None]
